FAERS Safety Report 9761258 (Version 3)
Quarter: 2014Q3

REPORT INFORMATION
  Report Type: Spontaneous
  Country: US (occurrence: US)
  Receive Date: 20131216
  Receipt Date: 20140804
  Transmission Date: 20150326
  Serious: Yes (Hospitalization, Disabling, Other)
  Sender: FDA-Public Use
  Company Number: US-009507513-1312USA007063

PATIENT
  Sex: Female
  Weight: 74.83 kg

DRUGS (1)
  1. NUVARING [Suspect]
     Active Substance: ETHINYL ESTRADIOL\ETONOGESTREL
     Dosage: UNK
     Route: 067
     Dates: start: 201107, end: 20120212

REACTIONS (12)
  - Bronchitis [Unknown]
  - Cryotherapy [Unknown]
  - Constipation [Unknown]
  - Cervical dysplasia [Unknown]
  - Anxiety [Unknown]
  - Cholecystectomy [Unknown]
  - Vomiting [Recovered/Resolved]
  - Adenotonsillectomy [Unknown]
  - Pulmonary embolism [Recovering/Resolving]
  - Diarrhoea [Recovered/Resolved]
  - Deep vein thrombosis [Recovered/Resolved]
  - Rotator cuff syndrome [Unknown]

NARRATIVE: CASE EVENT DATE: 201202
